FAERS Safety Report 6806975-5 (Version None)
Quarter: 2010Q2

REPORT INFORMATION
  Report Type: 
  Country: None (occurrence: None)
  Receive Date: 20100629
  Receipt Date: 20080616
  Transmission Date: 20101027
  Serious: No
  Sender: FDA-Public Use
  Company Number: US-PFIZER INC-2008049436

PATIENT
  Sex: Male
  Weight: 97.52 kg

DRUGS (21)
  1. ZYVOX [Suspect]
     Indication: INFECTION
     Route: 048
     Dates: start: 20080602
  2. ZYVOX [Suspect]
     Indication: ATRIAL FIBRILLATION
  3. CALAN [Concomitant]
  4. AVALIDE [Concomitant]
  5. PLETAL [Concomitant]
  6. ZANTAC [Concomitant]
  7. K-TAB [Concomitant]
  8. PROZAC [Concomitant]
  9. BUSPAR [Concomitant]
  10. ACETYLSALICYLIC ACID [Concomitant]
  11. VITAMIN C [Concomitant]
  12. SELENIUM [Concomitant]
  13. PLAVIX [Concomitant]
  14. WARFARIN SODIUM [Concomitant]
  15. ZYPREXA [Concomitant]
  16. VYTORIN [Concomitant]
  17. SITAGLIPTIN [Concomitant]
  18. NEXIUM [Concomitant]
  19. TRIOBE [Concomitant]
  20. POTASSIUM [Concomitant]
  21. QUINIDINE HCL [Concomitant]

REACTIONS (3)
  - BLOOD CHOLESTEROL INCREASED [None]
  - DIARRHOEA [None]
  - FUNGAL SKIN INFECTION [None]
